FAERS Safety Report 8541099-0 (Version None)
Quarter: 2012Q3

REPORT INFORMATION
  Report Type: 
  Country: None (occurrence: None)
  Receive Date: 20120726
  Receipt Date: 20110817
  Transmission Date: 20120928
  Serious: No
  Sender: FDA-Public Use
  Company Number: US-ASTRAZENECA-2011SE49682

PATIENT
  Age: 63 Year
  Sex: Male

DRUGS (1)
  1. SEROQUEL [Suspect]
     Route: 048

REACTIONS (3)
  - BRONCHITIS [None]
  - EMPHYSEMA [None]
  - CHRONIC OBSTRUCTIVE PULMONARY DISEASE [None]
